FAERS Safety Report 12083503 (Version 1)
Quarter: 2016Q1

REPORT INFORMATION
  Report Type: Spontaneous
  Country: US (occurrence: US)
  Receive Date: 20160217
  Receipt Date: 20160217
  Transmission Date: 20160526
  Serious: Yes (Hospitalization, Other)
  Sender: FDA-Public Use
  Company Number: US-ASTRAZENECA-2016SE14508

PATIENT
  Age: 1073 Month
  Sex: Female
  Weight: 63.5 kg

DRUGS (2)
  1. ASPIRIN. [Concomitant]
     Active Substance: ASPIRIN
     Dates: start: 201512
  2. BRILINTA [Suspect]
     Active Substance: TICAGRELOR
     Indication: STENT PLACEMENT
     Dosage: DOSE UNKNOWN, DAILY
     Route: 048
     Dates: start: 20150618, end: 201507

REACTIONS (4)
  - Spinal fracture [Unknown]
  - Internal haemorrhage [Unknown]
  - Body height decreased [Unknown]
  - Platelet count decreased [Unknown]

NARRATIVE: CASE EVENT DATE: 201507
